FAERS Safety Report 4579923-9 (Version None)
Quarter: 2005Q1

REPORT INFORMATION
  Report Type: 
  Country: None (occurrence: None)
  Receive Date: 20050211
  Receipt Date: 20050211
  Transmission Date: 20050727
  Serious: Yes (Other)
  Sender: FDA-Public Use
  Company Number: None

PATIENT
  Age: 19 Year
  Sex: Male

DRUGS (1)
  1. ACCUTANE [Suspect]
     Dosage: ORAL ; 40.0 MILLIGRAM
     Route: 048
     Dates: start: 20051115

REACTIONS (1)
  - EOSINOPHILIA [None]
